FAERS Safety Report 6655583-8 (Version None)
Quarter: 2010Q1

REPORT INFORMATION
  Report Type: 
  Country: None (occurrence: None)
  Receive Date: 20100317
  Receipt Date: 20100115
  Transmission Date: 20100710
  Serious: No
  Sender: FDA-Public Use
  Company Number: DSA_42350_2010

PATIENT
  Sex: Male

DRUGS (2)
  1. XENAZINE [Suspect]
     Indication: DYSTONIA
     Dosage: 12.5 MG QD ORAL
     Route: 048
     Dates: start: 20091201
  2. NORVASC [Concomitant]

REACTIONS (3)
  - ABDOMINAL DISCOMFORT [None]
  - CONDITION AGGRAVATED [None]
  - IRRITABLE BOWEL SYNDROME [None]
